FAERS Safety Report 25208151 (Version 1)
Quarter: 2025Q2

REPORT INFORMATION
  Report Type: Spontaneous
  Country: GR (occurrence: GR)
  Receive Date: 20250417
  Receipt Date: 20250417
  Transmission Date: 20250717
  Serious: No
  Sender: BLUEPRINT MEDICINES
  Company Number: GR-Blueprint Medicines Corporation-2025-AER-00715

PATIENT
  Sex: Male

DRUGS (1)
  1. AVAPRITINIB [Suspect]
     Active Substance: AVAPRITINIB
     Indication: Systemic mastocytosis
     Route: 065
     Dates: start: 2024

REACTIONS (3)
  - Abdominal pain [Unknown]
  - Diarrhoea [Unknown]
  - Constipation [Unknown]
